FAERS Safety Report 6927925-7 (Version None)
Quarter: 2010Q3

REPORT INFORMATION
  Report Type: 
  Country: None (occurrence: None)
  Receive Date: 20100817
  Receipt Date: 20100805
  Transmission Date: 20110219
  Serious: Yes (Hospitalization)
  Sender: FDA-Public Use
  Company Number: FR-PFIZER INC-2010098300

PATIENT
  Age: 16 Year
  Sex: Male

DRUGS (10)
  1. TRIFLUCAN [Suspect]
     Dosage: 1 DF, 1X/DAY
     Route: 048
     Dates: start: 20100621
  2. PROGRAF [Suspect]
     Dosage: 6 MG, 2X/DAY
     Route: 048
     Dates: start: 20090701
  3. CREON [Concomitant]
  4. TACROLIMUS [Concomitant]
  5. CELLCEPT [Concomitant]
     Dosage: UNK
     Dates: end: 20100615
  6. VALGANCICLOVIR [Concomitant]
  7. NEXIUM [Concomitant]
  8. CACIT D3 [Concomitant]
  9. CORTANCYL [Concomitant]
     Dosage: 5 MG, UNK
  10. EVEROLIMUS [Concomitant]

REACTIONS (1)
  - BLOOD CREATININE INCREASED [None]
